FAERS Safety Report 6091585-0 (Version None)
Quarter: 2009Q1

REPORT INFORMATION
  Report Type: 
  Country: None (occurrence: None)
  Receive Date: 20090225
  Receipt Date: 20080123
  Transmission Date: 20090719
  Serious: No
  Sender: FDA-Public Use
  Company Number: A0706436A

PATIENT
  Sex: Female

DRUGS (2)
  1. VALTREX [Suspect]
     Indication: EPSTEIN-BARR VIRUS INFECTION
     Dosage: 1G PER DAY
     Route: 048
     Dates: start: 20071101
  2. NARCOTICS [Concomitant]

REACTIONS (2)
  - OFF LABEL USE [None]
  - THERAPEUTIC RESPONSE UNEXPECTED [None]
